FAERS Safety Report 8400927-X (Version None)
Quarter: 2012Q2

REPORT INFORMATION
  Report Type: 
  Country: None (occurrence: None)
  Receive Date: 20120601
  Receipt Date: 20120522
  Transmission Date: 20120825
  Serious: No
  Sender: FDA-Public Use
  Company Number: US-B.I. PHARMACEUTICALS,INC./RIDGEFIELD-2012-BP-11487BP

PATIENT
  Age: 66 Year
  Sex: Male

DRUGS (9)
  1. ASPIRIN [Concomitant]
  2. AVAPRO [Concomitant]
     Indication: HYPERTENSION
  3. TINCTURE OF OPIUM [Concomitant]
     Indication: IRRITABLE BOWEL SYNDROME
  4. SPIRIVA [Suspect]
     Indication: CHRONIC OBSTRUCTIVE PULMONARY DISEASE
     Dosage: 18 MCG
     Route: 055
     Dates: start: 20120401
  5. SIMVASTATIN [Concomitant]
     Indication: BLOOD CHOLESTEROL INCREASED
  6. AMLODIPINE [Concomitant]
     Indication: HYPERTENSION
  7. VENTOLIN [Concomitant]
     Indication: PROPHYLAXIS
  8. VERAPAMIL HCL [Concomitant]
     Indication: HYPERTENSION
  9. CLONIDINE [Concomitant]
     Indication: HYPERTENSION

REACTIONS (1)
  - DYSPNOEA [None]
